FAERS Safety Report 11002290 (Version 1)
Quarter: 2015Q2

REPORT INFORMATION
  Report Type: Report from Study
  Country: RU (occurrence: RU)
  Receive Date: 20150408
  Receipt Date: 20150408
  Transmission Date: 20150821
  Serious: Yes (Life-Threatening, Hospitalization, Disabling, Other)
  Sender: FDA-Public Use
  Company Number: PHHY2015RU041091

PATIENT
  Age: 37 Year
  Sex: Male

DRUGS (1)
  1. AMN107 [Suspect]
     Active Substance: NILOTINIB
     Indication: DRUG RESISTANCE
     Dosage: 200 MG, UNK
     Route: 048
     Dates: start: 201104, end: 20140608

REACTIONS (5)
  - Pneumonia [Recovered/Resolved]
  - Lung infiltration [Unknown]
  - Pulmonary fibrosis [Unknown]
  - Product use issue [Unknown]
  - Respiratory failure [Recovered/Resolved]

NARRATIVE: CASE EVENT DATE: 201104
